FAERS Safety Report 7988718-5 (Version None)
Quarter: 2011Q4

REPORT INFORMATION
  Report Type: 
  Country: None (occurrence: None)
  Receive Date: 20111218
  Receipt Date: 20111205
  Transmission Date: 20120403
  Serious: Yes (Hospitalization)
  Sender: FDA-Public Use
  Company Number: JP-MYLANLABS-2011S1024297

PATIENT
  Age: 75 Year
  Sex: Male
  Weight: 41.4 kg

DRUGS (13)
  1. EPIRUBICIN [Suspect]
     Route: 013
     Dates: start: 20070606, end: 20070606
  2. TSU-68 [Concomitant]
     Route: 048
     Dates: start: 20110222, end: 20111031
  3. OMEPRAZOLE [Concomitant]
     Indication: GASTRIC ULCER
     Route: 048
  4. EPIRUBICIN [Suspect]
     Indication: HEPATIC NEOPLASM MALIGNANT
  5. EPIRUBICIN [Suspect]
     Route: 013
     Dates: start: 20080709, end: 20080709
  6. EPIRUBICIN [Suspect]
     Route: 013
     Dates: start: 20110216, end: 20110216
  7. TSU-68 [Suspect]
     Indication: HEPATIC NEOPLASM MALIGNANT
  8. FUROSEMIDE [Concomitant]
     Indication: ASCITES
     Route: 048
     Dates: start: 20110720
  9. EPIRUBICIN [Suspect]
     Route: 013
     Dates: start: 20090529, end: 20090529
  10. EPIRUBICIN [Suspect]
     Route: 013
     Dates: start: 20091021, end: 20091021
  11. EPIRUBICIN [Suspect]
     Route: 013
     Dates: start: 20111102, end: 20111102
  12. MOTILIUM [Concomitant]
     Indication: NAUSEA
     Route: 048
     Dates: start: 20111012
  13. POSTERISAN FORTE /01567801/ [Concomitant]
     Indication: HAEMORRHOIDS

REACTIONS (1)
  - LIVER ABSCESS [None]
